FAERS Safety Report 8212094-6 (Version None)
Quarter: 2012Q1

REPORT INFORMATION
  Report Type: 
  Country: None (occurrence: None)
  Receive Date: 20120315
  Receipt Date: 20120308
  Transmission Date: 20120608
  Serious: Yes (Other)
  Sender: FDA-Public Use
  Company Number: CA-UCBSA-052064

PATIENT
  Age: 46 Year
  Sex: Female
  Weight: 73 kg

DRUGS (6)
  1. CLONAZEPAM [Concomitant]
     Indication: ANXIOLYTIC THERAPY
     Dosage: DOSE PER INTAKE: 1-2 MG
     Route: 048
     Dates: start: 20100101
  2. CIMZIA [Suspect]
     Indication: RHEUMATOID ARTHRITIS
     Route: 058
     Dates: start: 20120216, end: 20120216
  3. PANTALOC [Concomitant]
     Indication: GASTRIC ULCER
     Route: 048
  4. PREDNISONE TAB [Concomitant]
     Indication: RHEUMATOID ARTHRITIS
     Route: 048
     Dates: start: 20100101
  5. PERCOCET [Concomitant]
     Indication: PAIN
     Dosage: 2 TO 4 TABS AS NEEDED
     Route: 048
     Dates: start: 20100101
  6. CLONAZEPAM [Concomitant]
     Indication: SLEEP DISORDER
     Dosage: DOSE PER INTAKE: 1-2 MG
     Route: 048
     Dates: start: 20100101

REACTIONS (7)
  - LOCAL SWELLING [None]
  - TACHYCARDIA [None]
  - CHEST PAIN [None]
  - NAUSEA [None]
  - HEADACHE [None]
  - SWELLING FACE [None]
  - VOMITING [None]
